FAERS Safety Report 9905022 (Version 2)
Quarter: 2014Q1

REPORT INFORMATION
  Report Type: Spontaneous
  Country: US (occurrence: US)
  Receive Date: 20140218
  Receipt Date: 20140218
  Transmission Date: 20141002
  Serious: Yes (Hospitalization)
  Sender: FDA-Public Use
  Company Number: US-GILEAD-2012-0049812

PATIENT
  Sex: Female

DRUGS (2)
  1. LETAIRIS [Suspect]
     Indication: PULMONARY HYPERTENSION
     Dosage: 5 MG, UNK
     Route: 048
     Dates: start: 20111213
  2. TYVASO [Concomitant]

REACTIONS (4)
  - Right ventricular failure [Unknown]
  - Alveolar-arterial oxygen gradient increased [Unknown]
  - Unevaluable event [Unknown]
  - Oedema peripheral [Unknown]
